FAERS Safety Report 9671249 (Version 2)
Quarter: 2013Q4

REPORT INFORMATION
  Report Type: Spontaneous
  Country: US (occurrence: US)
  Receive Date: 20131106
  Receipt Date: 20131106
  Transmission Date: 20140711
  Serious: Yes (Other)
  Sender: FDA-Public Use
  Company Number: US-PFIZER INC-2013260015

PATIENT
  Age: 90 Year
  Sex: Male

DRUGS (2)
  1. LATANOPROST [Suspect]
     Indication: GLAUCOMA
     Dosage: ONE DROP EACH EYE, DAILY AT BEDTIME
     Route: 047
  2. LATANOPROST [Suspect]
     Dosage: ONE DROP EACH EYE, DAILY AT BEDTIME
     Route: 047

REACTIONS (2)
  - Diabetic retinopathy [Unknown]
  - Drug administration error [Unknown]
